FAERS Safety Report 7153702-0 (Version None)
Quarter: 2010Q4

REPORT INFORMATION
  Report Type: 
  Country: None (occurrence: None)
  Receive Date: 20101130
  Receipt Date: 20101115
  Transmission Date: 20110411
  Serious: Yes (Congenital Anomaly, Other)
  Sender: FDA-Public Use
  Company Number: GER/UKI/09/0005798

PATIENT
  Sex: Male
  Weight: 2.46 kg

DRUGS (3)
  1. LAMOTRIGINE [Suspect]
     Indication: PARTIAL SEIZURES
     Dosage: 800 MG, 1 IN 1 D, TRANSPLACENTAL
     Route: 064
  2. TOPIRAMATE [Suspect]
     Indication: PARTIAL SEIZURES
     Dosage: 800 MG, 1 IN 1 D, TRANSPLACENTAL
     Route: 064
  3. LEVETIRACETAM [Suspect]
     Indication: PARTIAL SEIZURES
     Dosage: 500 MG, 1 IN 1 D, TRANSPLACENTAL
     Route: 064

REACTIONS (4)
  - MATERNAL DRUGS AFFECTING FOETUS [None]
  - PREMATURE BABY [None]
  - PYLORIC STENOSIS [None]
  - SMALL FOR DATES BABY [None]
